FAERS Safety Report 10330279 (Version 1)
Quarter: 2014Q3

REPORT INFORMATION
  Report Type: Report from Study
  Country: US (occurrence: US)
  Receive Date: 20140721
  Receipt Date: 20140721
  Transmission Date: 20150326
  Serious: Yes (Hospitalization)
  Sender: FDA-Public Use
  Company Number: PHHY2012US132404

PATIENT
  Age: 38 Year
  Sex: Female

DRUGS (42)
  1. AMBIEN [Concomitant]
     Active Substance: ZOLPIDEM TARTRATE
     Dosage: 1 DF (10 MG), DAILY
     Route: 048
  2. LOVAZA [Concomitant]
     Active Substance: OMEGA-3-ACID ETHYL ESTERS
     Dosage: 1 DF (4 MG), DAILY
     Route: 048
  3. MOBIC [Concomitant]
     Active Substance: MELOXICAM
     Dosage: 1 DF (10 MG), DAILY
     Route: 048
  4. NORCO [Concomitant]
     Active Substance: ACETAMINOPHEN\HYDROCODONE BITARTRATE
     Dosage: 1 DF (10 MG HYDR/ 325 MG PARA), UNK
     Route: 048
  5. TRICOR [Concomitant]
     Active Substance: FENOFIBRATE
     Dosage: 1 DF (145 MG), DAILY
     Route: 048
  6. XANAX [Concomitant]
     Active Substance: ALPRAZOLAM
     Dosage: 1 MG, UNK
  7. CELEXA [Concomitant]
     Active Substance: CITALOPRAM HYDROBROMIDE
     Dosage: 4 DF, DAILY
  8. MONONESSA [Concomitant]
     Active Substance: ETHINYL ESTRADIOL\NORGESTIMATE
     Dosage: UKN
  9. CARDIZEM [Concomitant]
     Active Substance: DILTIAZEM HYDROCHLORIDE
     Dosage: 1 DF (240 MG), DAILY
     Route: 048
  10. DILTIAZEM [Concomitant]
     Active Substance: DILTIAZEM
     Dosage: 2 DF (180 MG), DAILY
  11. XOLAIR [Suspect]
     Active Substance: OMALIZUMAB
     Indication: ASTHMA
     Dosage: 375 MG, EVERY TWO WEEKS
     Route: 058
  12. PREDNISONE. [Suspect]
     Active Substance: PREDNISONE
     Indication: PRODUCT USED FOR UNKNOWN INDICATION
     Dosage: 40 MG, DAILY
  13. LITHIUM [Concomitant]
     Active Substance: LITHIUM CARBONATE
     Dosage: UKN
  14. PULMICORT TURBUHALER [Concomitant]
     Active Substance: BUDESONIDE
     Dosage: UKN
  15. SINGULAIR [Concomitant]
     Active Substance: MONTELUKAST SODIUM
     Dosage: UKN
  16. SPIRIVA [Concomitant]
     Active Substance: TIOTROPIUM BROMIDE MONOHYDRATE
     Dosage: 1 DF (18 UG), DAILY
     Route: 048
  17. OMNARIS [Concomitant]
     Active Substance: CICLESONIDE
     Dosage: UNK UKN, UNK
  18. MUCINEX [Concomitant]
     Active Substance: GUAIFENESIN
     Dosage: 2 DF (600 MG), DAILY
  19. QVAR [Concomitant]
     Active Substance: BECLOMETHASONE DIPROPIONATE
     Dosage: 80 UG, UNK
  20. ZANAFLEX [Concomitant]
     Active Substance: TIZANIDINE HYDROCHLORIDE
     Dosage: 1 DF (8 MG), DAILY
  21. MICARDIS [Concomitant]
     Active Substance: TELMISARTAN
     Dosage: 1 DF (80 MG), DAILY
     Route: 048
  22. NYSTATIN. [Concomitant]
     Active Substance: NYSTATIN
     Dosage: AS DIRECTED
     Route: 048
  23. LEVAQUIN [Concomitant]
     Active Substance: LEVOFLOXACIN
     Dosage: UNK UKN, UNK
  24. ELAVIL [Concomitant]
     Active Substance: AMITRIPTYLINE HYDROCHLORIDE
     Dosage: 25 MG, UNK
  25. BUTRANS//BUPRENORPHINE HYDROCHLORIDE [Concomitant]
     Dosage: 1 DF (5 MG), IN 1 WEEK
  26. PERFOROMIST [Concomitant]
     Active Substance: FORMOTEROL FUMARATE DIHYDRATE
     Dosage: 5 DF, DAILY
  27. DEXILANT [Concomitant]
     Active Substance: DEXLANSOPRAZOLE
     Dosage: 2 DF (60 MG), DAILY
     Route: 048
  28. BACTROBAN [Concomitant]
     Active Substance: MUPIROCIN\MUPIROCIN CALCIUM
     Dosage: UNK UKN, UNK
     Route: 061
  29. VOLTAREN [Concomitant]
     Active Substance: DICLOFENAC SODIUM
     Dosage: 1 DF, DAILY
     Route: 061
  30. OMNICEF [Concomitant]
     Active Substance: CEFDINIR
     Dosage: UNK UKN, UNK
  31. SEROQUEL [Concomitant]
     Active Substance: QUETIAPINE FUMARATE
     Dosage: 1 DF (100 MG), DAILY
  32. ALLEGRA [Suspect]
     Active Substance: FEXOFENADINE HYDROCHLORIDE
     Indication: PRODUCT USED FOR UNKNOWN INDICATION
     Dosage: 180 MG, DAILY
     Route: 048
  33. XOPENEX [Concomitant]
     Active Substance: LEVALBUTEROL HYDROCHLORIDE
     Dosage: UKN
  34. SYNTHROID [Concomitant]
     Active Substance: LEVOTHYROXINE SODIUM
     Dosage: 1 DF (100 UG), DAILY
     Route: 048
  35. AVELOX [Concomitant]
     Active Substance: MOXIFLOXACIN HYDROCHLORIDE
     Dosage: UNK UKN, UNK
  36. MELOXICAM. [Concomitant]
     Active Substance: MELOXICAM
     Dosage: 15 MG, UNK
  37. VITAMIN B12 [Concomitant]
     Active Substance: CYANOCOBALAMIN
     Dosage: 4 DF, IN 2 WEEKS
  38. ACIPHEX [Concomitant]
     Active Substance: RABEPRAZOLE SODIUM
     Dosage: 4 DF (40 MG), DAILY
  39. ZYFLO [Concomitant]
     Active Substance: ZILEUTON
     Dosage: UKN
  40. SYMBICORT [Concomitant]
     Active Substance: BUDESONIDE\FORMOTEROL FUMARATE DIHYDRATE
     Dosage: 2 DF (160 UG BUDE/ 4.5 UG FORM), DAILY
     Route: 045
  41. NASONEX [Concomitant]
     Active Substance: MOMETASONE FUROATE
     Dosage: 1 DF (50 UG), DAILY
     Route: 045
  42. DIFLUCAN [Concomitant]
     Active Substance: FLUCONAZOLE
     Dosage: 4 DF (200 MG), DAILY

REACTIONS (5)
  - Asthma [Unknown]
  - Rhinitis allergic [Unknown]
  - Pancreatitis acute [Unknown]
  - Candida infection [Unknown]
  - Pharyngeal erythema [Unknown]

NARRATIVE: CASE EVENT DATE: 2011
